FAERS Safety Report 20910892 (Version 1)
Quarter: 2022Q2

REPORT INFORMATION
  Report Type: Spontaneous
  Country: JP (occurrence: JP)
  Receive Date: 20220603
  Receipt Date: 20220603
  Transmission Date: 20220721
  Serious: Yes (Death, Other)
  Sender: FDA-Public Use
  Company Number: JP-MSNLABS-2022MSNLIT00566

PATIENT

DRUGS (1)
  1. CLOFARABINE [Suspect]
     Active Substance: CLOFARABINE
     Indication: Chemotherapy
     Route: 065

REACTIONS (3)
  - Acute myeloid leukaemia [Fatal]
  - Drug ineffective [Fatal]
  - Disease progression [Fatal]
